FAERS Safety Report 20265048 (Version 2)
Quarter: 2022Q1

REPORT INFORMATION
  Report Type: Report from Study
  Country: US (occurrence: US)
  Receive Date: 20211231
  Receipt Date: 20220118
  Transmission Date: 20220423
  Serious: Yes (Other)
  Sender: FDA-Public Use
  Company Number: US-NOVARTISPH-NVSC2021US299610

PATIENT
  Age: 78 Year
  Sex: Female
  Weight: 85 kg

DRUGS (1)
  1. EXJADE [Suspect]
     Active Substance: DEFERASIROX
     Indication: Blood iron increased
     Dosage: 1000 UNK, QD
     Route: 048
     Dates: start: 20200902, end: 20210826

REACTIONS (2)
  - Renal failure [Recovered/Resolved]
  - Blood creatinine increased [Unknown]

NARRATIVE: CASE EVENT DATE: 20210519
